FAERS Safety Report 4334837-4 (Version None)
Quarter: 2004Q2

REPORT INFORMATION
  Report Type: 
  Country: None (occurrence: None)
  Receive Date: 20040405
  Receipt Date: 20040322
  Transmission Date: 20050107
  Serious: Yes (Death)
  Sender: FDA-Public Use
  Company Number: 2004SE01175

PATIENT
  Age: 74 Year
  Sex: Male
  Weight: 76 kg

DRUGS (4)
  1. APATEF [Suspect]
     Dosage: 2 G IV
     Route: 042
     Dates: start: 20040217, end: 20040226
  2. URBASON [Concomitant]
  3. METRONIDAZOLE [Concomitant]
  4. NOVALGINA [Concomitant]

REACTIONS (8)
  - GENERAL PHYSICAL HEALTH DETERIORATION [None]
  - HAEMOGLOBIN DECREASED [None]
  - HEPATIC FAILURE [None]
  - HYPERPYREXIA [None]
  - IATROGENIC INJURY [None]
  - JAUNDICE ACHOLURIC [None]
  - RED BLOOD CELL COUNT DECREASED [None]
  - SUDDEN DEATH [None]
